FAERS Safety Report 16150104 (Version 2)
Quarter: 2019Q2

REPORT INFORMATION
  Report Type: Spontaneous
  Country: US (occurrence: US)
  Receive Date: 20190403
  Receipt Date: 20190514
  Transmission Date: 20190711
  Serious: No
  Sender: FDA-Public Use
  Company Number: US-SHIRE-US201910815

PATIENT
  Age: 64 Year
  Sex: Female

DRUGS (1)
  1. NATPARA (PARATHYROID HORMONE) [Suspect]
     Active Substance: PARATHYROID HORMONE
     Indication: HYPOPARATHYROIDISM
     Dosage: 100 MICROGRAM, 1X/DAY:QD
     Route: 050
     Dates: start: 20180709

REACTIONS (2)
  - Inappropriate schedule of product administration [Unknown]
  - Blood calcium increased [Unknown]

NARRATIVE: CASE EVENT DATE: 20190329
